FAERS Safety Report 7925707 (Version 4)
Quarter: 2013Q2

REPORT INFORMATION
  Report Type: Spontaneous
  Country: US (occurrence: US)
  Receive Date: 20110502
  Receipt Date: 20130517
  Transmission Date: 20140414
  Serious: Yes (Other)
  Sender: FDA-Public Use
  Company Number: US-ASTRAZENECA-2010SE44571

PATIENT
  Age: 57 Year
  Sex: Female

DRUGS (3)
  1. NEXIUM [Suspect]
     Route: 048
  2. PRILOSEC [Suspect]
     Route: 048
  3. ANTIBIOTICS [Suspect]
     Indication: BRONCHITIS
     Route: 065

REACTIONS (12)
  - Angina pectoris [Unknown]
  - Impaired work ability [Unknown]
  - Gastrooesophageal reflux disease [Unknown]
  - Back disorder [Unknown]
  - Dyspepsia [Unknown]
  - Adverse event [Unknown]
  - Sleep disorder due to general medical condition, insomnia type [Unknown]
  - Gastric disorder [Unknown]
  - Bronchitis [Unknown]
  - Drug dose omission [Unknown]
  - Intentional drug misuse [Unknown]
  - Drug ineffective [Unknown]
